FAERS Safety Report 9447797 (Version 1)
Quarter: 2013Q3

REPORT INFORMATION
  Report Type: Spontaneous
  Country: US (occurrence: US)
  Receive Date: 20130808
  Receipt Date: 20130808
  Transmission Date: 20140515
  Serious: Yes (Other)
  Sender: FDA-Public Use
  Company Number: US-AMGEN-USACT2013055181

PATIENT
  Sex: 0

DRUGS (14)
  1. FILGRASTIM [Suspect]
     Indication: BURKITT^S LYMPHOMA
     Dosage: 5 MUG/KG, 1 IN 1 D (DAY 3, UNTIL POST-NADIR ANC MORE THAN OR EQUAL TO 500/ UL)
     Route: 058
  2. FILGRASTIM [Suspect]
     Dosage: 5 MUG/KG, UNK (DAY 11, UNTIL POST-NADIR ANC MORE THAN OR EQUAL TO 1000/ UL)
     Route: 058
  3. RITUXIMAB [Suspect]
     Indication: BURKITT^S LYMPHOMA
     Dosage: 375 MG/M2, 1 IN 1 D (DAY 1 AND 8)
     Route: 042
  4. RITUXIMAB [Suspect]
     Dosage: 375 UNK, 1 IN 1 WK (4 DOSES WEEKLY)
     Route: 042
  5. CYCLOPHOSPHAMIDE [Suspect]
     Indication: BURKITT^S LYMPHOMA
     Dosage: 1500 MG/M2, 1 IN 1 DAY (DAY 1)
     Route: 042
  6. CYCLOPHOSPHAMIDE [Suspect]
     Dosage: 50 MG/KG, 1 IN 1 D (DAY 2-5)
     Route: 042
  7. MESNA [Suspect]
     Indication: BURKITT^S LYMPHOMA
     Dosage: 900 MG/M2, 1 IN 1 D
     Route: 042
  8. MESNA [Suspect]
     Dosage: 40 MG/KG, 1 IN 1 D (DAY 2-5)
     Route: 042
  9. VINCRISTINE [Suspect]
     Indication: BURKITT^S LYMPHOMA
     Dosage: 1.4 MG/M2, UNK (2 MG CAPSULE, DAY 1)
     Route: 042
  10. PREDNISONE [Suspect]
     Indication: BURKITT^S LYMPHOMA
     Dosage: UNK UNK, 1 IN 1 D (DAY 1-5)
     Route: 048
  11. METHOTREXATE [Suspect]
     Indication: BURKITT^S LYMPHOMA
     Dosage: 3 MG/M2, UNK (DAY 8)
     Route: 042
  12. LEUCOVORIN /00566702/ [Suspect]
     Indication: BURKITT^S LYMPHOMA
     Dosage: 25 MG/M2, UNK
     Route: 042
  13. CYTARABINE [Suspect]
     Indication: BURKITT^S LYMPHOMA
     Dosage: 100 MG, UNK
     Route: 037
  14. HYDROCORTISONE [Suspect]
     Indication: BURKITT^S LYMPHOMA
     Dosage: 50 MG, UNK
     Route: 037

REACTIONS (4)
  - Neutropenic infection [Unknown]
  - Tumour lysis syndrome [Unknown]
  - Neutropenia [Unknown]
  - Herpes zoster meningitis [Unknown]
